FAERS Safety Report 11380666 (Version 1)
Quarter: 2015Q3

REPORT INFORMATION
  Report Type: Spontaneous
  Country: US (occurrence: None)
  Receive Date: 20150813
  Receipt Date: 20150813
  Transmission Date: 20151125
  Serious: Yes (Death)
  Sender: FDA-Public Use
  Company Number: None

PATIENT
  Age: 60 Year
  Sex: Female

DRUGS (1)
  1. IBRANCE [Suspect]
     Active Substance: PALBOCICLIB
     Indication: BREAST CANCER
     Dosage: 125 MG  DAILY FOR 21 DAYS ON AND   PO
     Route: 048
     Dates: start: 20150520, end: 20150709

REACTIONS (4)
  - Malaise [None]
  - Infection [None]
  - White blood cell count decreased [None]
  - Fatigue [None]

NARRATIVE: CASE EVENT DATE: 20150723
